FAERS Safety Report 9254297 (Version 1)
Quarter: 2013Q2

REPORT INFORMATION
  Report Type: Spontaneous
  Country: US (occurrence: None)
  Receive Date: 20130422
  Receipt Date: 20130422
  Transmission Date: 20140414
  Serious: Yes (Life-Threatening, Hospitalization)
  Sender: FDA-Public Use
  Company Number: None

PATIENT
  Age: 78 Year
  Sex: Male
  Weight: 81.4 kg

DRUGS (2)
  1. ALVIMOPAN [Suspect]
     Indication: ATRIAL FIBRILLATION
     Route: 048
     Dates: start: 20130412, end: 20130415
  2. ALVIMOPAN [Suspect]
     Indication: ACUTE MYOCARDIAL INFARCTION
     Route: 048
     Dates: start: 20130412, end: 20130415

REACTIONS (3)
  - Acute myocardial infarction [None]
  - Transient ischaemic attack [None]
  - Cerebrovascular accident [None]
